FAERS Safety Report 7616737-7 (Version None)
Quarter: 2011Q3

REPORT INFORMATION
  Report Type: 
  Country: None (occurrence: None)
  Receive Date: 20110718
  Receipt Date: 20110707
  Transmission Date: 20111222
  Serious: Yes (Other)
  Sender: FDA-Public Use
  Company Number: FR-BIOGENIDEC-2011BI023757

PATIENT
  Sex: Male

DRUGS (7)
  1. ANTIHYPERTENSIVES [Concomitant]
  2. MUSCLE RELAXANTS [Concomitant]
  3. BACLOFEN [Concomitant]
  4. AMYTRIPTYLINE [Concomitant]
  5. TYSABRI [Suspect]
     Indication: MULTIPLE SCLEROSIS
     Route: 042
     Dates: start: 20070809
  6. TEMAZEPAM [Concomitant]
  7. CLONAZEPAM [Concomitant]

REACTIONS (1)
  - COGNITIVE DISORDER [None]
